FAERS Safety Report 6015106-3 (Version None)
Quarter: 2008Q4

REPORT INFORMATION
  Report Type: 
  Country: None (occurrence: None)
  Receive Date: 20081222
  Receipt Date: 20081216
  Transmission Date: 20090506
  Serious: Yes (Hospitalization)
  Sender: FDA-Public Use
  Company Number: FR-BRISTOL-MYERS SQUIBB COMPANY-14441216

PATIENT
  Age: 33 Year
  Sex: Male

DRUGS (9)
  1. SUSTIVA [Suspect]
     Indication: ANTIRETROVIRAL THERAPY
     Route: 048
     Dates: start: 20080521
  2. TRUVADA [Suspect]
     Indication: ANTIRETROVIRAL THERAPY
     Dosage: 1 DOSAGE FORM = 200 MG/245 MG
     Route: 048
     Dates: start: 20080521, end: 20080530
  3. EPIVIR [Suspect]
     Indication: ANTIRETROVIRAL THERAPY
     Route: 048
     Dates: start: 20080521, end: 20080610
  4. BACTRIM [Suspect]
     Route: 048
     Dates: start: 20080521
  5. MYAMBUTOL [Suspect]
     Indication: TUBERCULOSIS
     Route: 048
     Dates: start: 20080523
  6. ROCEPHIN [Suspect]
     Dates: start: 20080506
  7. NAPROXEN SODIUM [Suspect]
     Route: 048
     Dates: start: 20080506
  8. KALETRA [Suspect]
     Indication: ANTIRETROVIRAL THERAPY
     Route: 048
     Dates: start: 20080521, end: 20080530
  9. RIFATER [Suspect]
     Indication: TUBERCULOSIS
     Route: 048
     Dates: start: 20080523

REACTIONS (5)
  - HISTIOCYTOSIS HAEMATOPHAGIC [None]
  - HYPERTENSION [None]
  - IMMUNE RECONSTITUTION SYNDROME [None]
  - PROTEINURIA [None]
  - RENAL FAILURE ACUTE [None]
